FAERS Safety Report 19379432 (Version 1)
Quarter: 2021Q2

REPORT INFORMATION
  Report Type: Spontaneous
  Country: CN (occurrence: CN)
  Receive Date: 20210607
  Receipt Date: 20210607
  Transmission Date: 20210717
  Serious: Yes (Life-Threatening)
  Sender: FDA-Public Use
  Company Number: CN-SHANGHAI HENGRUI PHARMACEUTICAL CO., LTD.-2112395

PATIENT
  Age: 51 Year
  Sex: Male
  Weight: 81 kg

DRUGS (3)
  1. PROPOFOLUM [Suspect]
     Active Substance: PROPOFOL
     Dates: start: 20210519, end: 20210519
  2. SEVOFLURANE USP, 100%, LIQUID FOR INHALATION [Suspect]
     Active Substance: SEVOFLURANE
     Indication: GENERAL ANAESTHESIA
     Route: 055
     Dates: start: 20210519, end: 20210519
  3. CISATRACURIUM. [Suspect]
     Active Substance: CISATRACURIUM
     Dates: start: 20210519, end: 20210519

REACTIONS (4)
  - Erythema [Recovering/Resolving]
  - Hypotension [Recovering/Resolving]
  - Body temperature increased [Recovering/Resolving]
  - Localised oedema [Recovering/Resolving]

NARRATIVE: CASE EVENT DATE: 20210519
